FAERS Safety Report 10310274 (Version 2)
Quarter: 2014Q3

REPORT INFORMATION
  Report Type: Spontaneous
  Country: US (occurrence: US)
  Receive Date: 20140717
  Receipt Date: 20140804
  Transmission Date: 20150326
  Serious: No
  Sender: FDA-Public Use
  Company Number: US-PFIZER INC-2014198013

PATIENT
  Age: 76 Year
  Sex: Female

DRUGS (12)
  1. CODEINE PHOSPHATE [Suspect]
     Active Substance: CODEINE PHOSPHATE
     Dosage: UNK
  2. AMITRIPTYLINE [Suspect]
     Active Substance: AMITRIPTYLINE
     Dosage: 1X/DAY
     Route: 048
  3. AVELOX [Suspect]
     Active Substance: MOXIFLOXACIN HYDROCHLORIDE
     Dosage: UNK
  4. ZYPREXA [Suspect]
     Active Substance: OLANZAPINE
     Dosage: UNK
  5. FISH OIL [Suspect]
     Active Substance: FISH OIL
     Dosage: 1000 MG, 3X/DAY
     Route: 048
     Dates: start: 20131212, end: 20140106
  6. ERYTHROMYCIN. [Suspect]
     Active Substance: ERYTHROMYCIN
     Dosage: UNK
  7. MORPHINE SULFATE. [Suspect]
     Active Substance: MORPHINE SULFATE
     Dosage: UNK
  8. PREDNISOLONE. [Suspect]
     Active Substance: PREDNISOLONE
     Dosage: UNK
  9. NEOSPORIN [Suspect]
     Active Substance: BACITRACIN ZINC\NEOMYCIN SULFATE\POLYMYXIN B SULFATE
     Dosage: UNK
  10. SEROQUEL [Suspect]
     Active Substance: QUETIAPINE FUMARATE
     Dosage: UNK
  11. CELEBREX [Suspect]
     Active Substance: CELECOXIB
     Dosage: UNK
  12. THORAZINE [Suspect]
     Active Substance: CHLORPROMAZINE
     Dosage: 1X/DAY
     Route: 048

REACTIONS (1)
  - Drug hypersensitivity [Unknown]
